FAERS Safety Report 9235735 (Version 1)
Quarter: 2013Q2

REPORT INFORMATION
  Report Type: Spontaneous
  Country: BR (occurrence: BR)
  Receive Date: 20130417
  Receipt Date: 20130417
  Transmission Date: 20140414
  Serious: Yes (Death, Other)
  Sender: FDA-Public Use
  Company Number: BR-ACCORD-017254

PATIENT
  Age: 58 Year
  Sex: Female
  Weight: 54 kg

DRUGS (12)
  1. PACLITAXEL [Suspect]
     Indication: LUNG NEOPLASM MALIGNANT
     Route: 042
     Dates: start: 20130203, end: 20130203
  2. METOCLOPRAMIDE [Concomitant]
     Dates: start: 2013, end: 2013
  3. CODEINE [Concomitant]
     Route: 048
     Dates: start: 20130203, end: 20130203
  4. DEXAMETHASONE [Concomitant]
     Route: 042
     Dates: start: 20130203, end: 20130203
  5. PARACETAMOL [Concomitant]
     Route: 048
     Dates: start: 20130203, end: 20130203
  6. TRAMADOL [Concomitant]
     Dates: start: 2013, end: 2013
  7. DIPIRONA [Concomitant]
     Route: 048
     Dates: start: 20130203, end: 20130203
  8. DIPHENHYDRAMINE [Concomitant]
     Route: 042
     Dates: start: 20130203, end: 20130203
  9. MORFINE [Concomitant]
     Dates: start: 2013, end: 2013
  10. DEXAMETHASONE [Concomitant]
     Route: 048
     Dates: start: 2013, end: 2013
  11. ONDANSETRON [Concomitant]
     Route: 042
     Dates: start: 20130203, end: 20130203
  12. RANITIDINE [Concomitant]
     Route: 042
     Dates: start: 20130203, end: 20130203

REACTIONS (4)
  - Tachypnoea [Unknown]
  - Oxygen saturation decreased [Unknown]
  - Peripheral coldness [Unknown]
  - Respiratory failure [Fatal]
